FAERS Safety Report 8607938-X (Version None)
Quarter: 2012Q3

REPORT INFORMATION
  Report Type: 
  Country: None (occurrence: None)
  Receive Date: 20120821
  Receipt Date: 20120810
  Transmission Date: 20120928
  Serious: Yes (Hospitalization)
  Sender: FDA-Public Use
  Company Number: US-BRISTOL-MYERS SQUIBB COMPANY-16849804

PATIENT
  Age: 46 Year
  Sex: Female
  Weight: 66 kg

DRUGS (1)
  1. IXEMPRA KIT [Suspect]
     Indication: UTERINE LEIOMYOSARCOMA
     Dosage: LAST ADMIN: 12JUN12. CYC=21 DAYS. 40MG/M2 OVER 3 HRS ON DAY 1. COURSES:2
     Route: 042
     Dates: start: 20120522, end: 20120612

REACTIONS (4)
  - HYPOCALCAEMIA [None]
  - ANAEMIA [None]
  - PAIN [None]
  - HYPOALBUMINAEMIA [None]
